FAERS Safety Report 7866533-0 (Version None)
Quarter: 2011Q4

REPORT INFORMATION
  Report Type: 
  Country: None (occurrence: None)
  Receive Date: 20111028
  Receipt Date: 20110630
  Transmission Date: 20120403
  Serious: No
  Sender: FDA-Public Use
  Company Number: US-GLAXOSMITHKLINE-A0933993A

PATIENT
  Sex: Female

DRUGS (6)
  1. OMEPRAZOLE [Concomitant]
  2. CELEBREX [Concomitant]
  3. ADVAIR DISKUS 100/50 [Suspect]
     Indication: CHRONIC OBSTRUCTIVE PULMONARY DISEASE
     Dosage: 1PUFF PER DAY
     Route: 055
  4. QUINAPRIL [Concomitant]
  5. ATENOLOL AND CHLORTHALIDONE [Concomitant]
  6. SIMVASTATIN [Concomitant]

REACTIONS (4)
  - INCORRECT DOSE ADMINISTERED [None]
  - CHRONIC OBSTRUCTIVE PULMONARY DISEASE [None]
  - TREATMENT NONCOMPLIANCE [None]
  - DRUG INEFFECTIVE [None]
